FAERS Safety Report 16732181 (Version 3)
Quarter: 2019Q3

REPORT INFORMATION
  Report Type: Spontaneous
  Country: DE (occurrence: DE)
  Receive Date: 20190822
  Receipt Date: 20190925
  Transmission Date: 20191005
  Serious: Yes (Hospitalization, Other)
  Sender: FDA-Public Use
  Company Number: DE-B.I. PHARMACEUTICALS,INC./RIDGEFIELD-2019-BI-033839

PATIENT
  Sex: Female

DRUGS (4)
  1. CANDESARTAN. [Suspect]
     Active Substance: CANDESARTAN
     Indication: ATRIAL FIBRILLATION
     Route: 065
     Dates: start: 20190810, end: 20190820
  2. PRADAXA [Suspect]
     Active Substance: DABIGATRAN ETEXILATE MESYLATE
     Indication: TRANSIENT ISCHAEMIC ATTACK
  3. CANDESARTAN. [Suspect]
     Active Substance: CANDESARTAN
     Route: 065
     Dates: start: 201907
  4. PRADAXA [Suspect]
     Active Substance: DABIGATRAN ETEXILATE MESYLATE
     Indication: ATRIAL FIBRILLATION
     Route: 065
     Dates: start: 20190807, end: 20190817

REACTIONS (4)
  - Headache [Not Recovered/Not Resolved]
  - Transient ischaemic attack [Recovered/Resolved]
  - Sensory disturbance [Recovered/Resolved]
  - Hypoaesthesia [Not Recovered/Not Resolved]
